FAERS Safety Report 7571380-3 (Version None)
Quarter: 2011Q2

REPORT INFORMATION
  Report Type: 
  Country: None (occurrence: None)
  Receive Date: 20110624
  Receipt Date: 20110621
  Transmission Date: 20111010
  Serious: Yes (Other)
  Sender: FDA-Public Use
  Company Number: US-PFIZER INC-2011044460

PATIENT
  Sex: Female

DRUGS (8)
  1. CYCLOBENZAPRINE [Concomitant]
     Indication: MUSCLE RELAXANT THERAPY
     Dosage: UNK
     Dates: start: 20070101
  2. MS CONTIN [Concomitant]
     Indication: PAIN
     Dosage: UNK
     Dates: start: 20020101
  3. DOXAZOSIN [Concomitant]
     Indication: POST-TRAUMATIC STRESS DISORDER
     Dosage: UNK
     Dates: start: 20060101
  4. CHANTIX [Suspect]
     Indication: SMOKING CESSATION THERAPY
     Dosage: UNK
     Dates: start: 20090623, end: 20090705
  5. PERCOCET [Concomitant]
     Indication: PAIN
     Dosage: UNK
     Dates: start: 20020101
  6. SIMVASTATIN [Concomitant]
     Indication: BLOOD CHOLESTEROL
     Dosage: UNK
     Dates: start: 20070101
  7. OXYCODONE [Concomitant]
     Indication: OSTEOPENIA
     Dosage: UNK
     Dates: start: 20040101
  8. VITAMIN D [Concomitant]
     Indication: OSTEOPENIA
     Dosage: UNK
     Dates: start: 20040101

REACTIONS (11)
  - LOSS OF CONSCIOUSNESS [None]
  - HEAD INJURY [None]
  - DEPRESSION [None]
  - CONFUSIONAL STATE [None]
  - BALANCE DISORDER [None]
  - DISTURBANCE IN ATTENTION [None]
  - MENTAL DISORDER [None]
  - EMOTIONAL DISTRESS [None]
  - HEADACHE [None]
  - VISION BLURRED [None]
  - ANXIETY [None]
